FAERS Safety Report 25927594 (Version 1)
Quarter: 2025Q4

REPORT INFORMATION
  Report Type: Spontaneous
  Country: JP (occurrence: JP)
  Receive Date: 20251016
  Receipt Date: 20251016
  Transmission Date: 20260118
  Serious: Yes (Life-Threatening)
  Sender: GLAXOSMITHKLINE
  Company Number: JP-TAKEDA-2025TJP010081

PATIENT
  Sex: Female

DRUGS (1)
  1. ZEJULA [Suspect]
     Active Substance: NIRAPARIB
     Indication: Ovarian cancer
     Dosage: 200 MILLIGRAM

REACTIONS (1)
  - Platelet count decreased [Recovered/Resolved]
